FAERS Safety Report 6163578-6 (Version None)
Quarter: 2009Q2

REPORT INFORMATION
  Report Type: 
  Country: None (occurrence: None)
  Receive Date: 20090422
  Receipt Date: 20021223
  Transmission Date: 20091009
  Serious: No
  Sender: FDA-Public Use
  Company Number: US-SOLVAY-00202003403

PATIENT
  Age: 41 Year
  Sex: Female
  Weight: 68.039 kg

DRUGS (3)
  1. ANDROGEL [Suspect]
     Indication: ACCIDENTAL EXPOSURE
     Dosage: DAILY DOSE: 5 G.
     Route: 062
  2. ACCOLATE [Concomitant]
     Indication: ASTHMA
     Dosage: DAILY DOSE: UNK.
     Route: 048
  3. ZYRTEC [Concomitant]
     Indication: HYPERSENSITIVITY
     Dosage: DAILY DOSE: UNK.
     Route: 048

REACTIONS (1)
  - ACNE [None]
